FAERS Safety Report 8463818 (Version 4)
Quarter: 2013Q1

REPORT INFORMATION
  Report Type: Spontaneous
  Country: JP (occurrence: JP)
  Receive Date: 20120316
  Receipt Date: 20130102
  Transmission Date: 20140127
  Serious: Yes (Hospitalization, Other)
  Sender: FDA-Public Use
  Company Number: JP-GLAXOSMITHKLINE-B0788810A

PATIENT
  Age: 68 Year
  Sex: Female
  Weight: 50 kg

DRUGS (1)
  1. HYCAMTIN [Suspect]
     Indication: OVARIAN CANCER RECURRENT
     Dosage: .5MG PER DAY
     Route: 042
     Dates: start: 20120220, end: 20120420

REACTIONS (8)
  - Anaemia [Recovered/Resolved]
  - Nausea [Recovered/Resolved]
  - Decreased appetite [Recovered/Resolved]
  - White blood cell count decreased [Recovered/Resolved]
  - Neutrophil count decreased [Recovered/Resolved]
  - Red blood cell count decreased [Recovering/Resolving]
  - Platelet count decreased [Recovered/Resolved]
  - Oedema peripheral [Recovered/Resolved with Sequelae]
